FAERS Safety Report 14980990 (Version 1)
Quarter: 2018Q2

REPORT INFORMATION
  Report Type: Spontaneous
  Country: JP (occurrence: JP)
  Receive Date: 20180606
  Receipt Date: 20180606
  Transmission Date: 20180711
  Serious: Yes (Hospitalization, Other)
  Sender: FDA-Public Use
  Company Number: JP-AMGEN-JPNSP2017163887

PATIENT
  Age: 74 Year
  Sex: Female
  Weight: 37.9 kg

DRUGS (2)
  1. ENBREL [Suspect]
     Active Substance: ETANERCEPT
     Indication: RHEUMATOID ARTHRITIS
     Dosage: 25 MG, WEEKLY
     Route: 058
     Dates: start: 201205, end: 20170726
  2. ISCOTIN [Concomitant]
     Active Substance: ISONIAZID
     Dosage: UNK
     Route: 048

REACTIONS (4)
  - Off label use [Unknown]
  - Lupus-like syndrome [Recovering/Resolving]
  - Antinuclear antibody positive [Not Recovered/Not Resolved]
  - Colonic abscess [Unknown]

NARRATIVE: CASE EVENT DATE: 201205
